FAERS Safety Report 24344230 (Version 1)
Quarter: 2024Q3

REPORT INFORMATION
  Report Type: Spontaneous
  Country: US (occurrence: US)
  Receive Date: 20240920
  Receipt Date: 20240920
  Transmission Date: 20241016
  Serious: Yes (Hospitalization)
  Sender: TAKEDA
  Company Number: US-TAKEDA-2024TUS091472

PATIENT
  Age: 26 Year
  Sex: Female

DRUGS (1)
  1. VYVANSE [Suspect]
     Active Substance: LISDEXAMFETAMINE DIMESYLATE
     Indication: Attention deficit hyperactivity disorder
     Dosage: 40 MILLIGRAM
     Route: 065

REACTIONS (6)
  - Psychotic disorder [Unknown]
  - Delusion [Unknown]
  - Exploding head syndrome [Unknown]
  - Memory impairment [Unknown]
  - Intentional product misuse [Unknown]
  - Mania [Unknown]
